FAERS Safety Report 7092796-8 (Version None)
Quarter: 2010Q4

REPORT INFORMATION
  Report Type: 
  Country: None (occurrence: None)
  Receive Date: 20101110
  Receipt Date: 20101101
  Transmission Date: 20110411
  Serious: Yes (Other)
  Sender: FDA-Public Use
  Company Number: US-PFIZER INC-2010139338

PATIENT
  Sex: Female

DRUGS (2)
  1. LIPITOR [Suspect]
     Dosage: 40 MG, UNK
  2. WELCHOL [Suspect]
     Indication: BLOOD CHOLESTEROL
     Dosage: UNK

REACTIONS (4)
  - CONSTIPATION [None]
  - HYPERGLYCAEMIA [None]
  - MYALGIA [None]
  - PRURITUS [None]
